FAERS Safety Report 9772634 (Version 1)
Quarter: 2013Q4

REPORT INFORMATION
  Report Type: Spontaneous
  Country: US (occurrence: None)
  Receive Date: 20131218
  Receipt Date: 20131218
  Transmission Date: 20140711
  Serious: No
  Sender: FDA-Public Use
  Company Number: None

PATIENT
  Age: 44 Year
  Sex: Male
  Weight: 96.21 kg

DRUGS (1)
  1. TEMOZOLOMIDE [Suspect]
     Dates: start: 20130927

REACTIONS (1)
  - Platelet count decreased [None]
